FAERS Safety Report 15735230 (Version 1)
Quarter: 2018Q4

REPORT INFORMATION
  Report Type: Spontaneous
  Country: US (occurrence: US)
  Receive Date: 20181218
  Receipt Date: 20181218
  Transmission Date: 20190205
  Serious: Yes (Hospitalization)
  Sender: FDA-Public Use
  Company Number: US-SAKK-2018SA342861AA

PATIENT
  Age: 67 Year
  Sex: Male

DRUGS (1)
  1. TOUJEO [Suspect]
     Active Substance: INSULIN GLARGINE
     Indication: TYPE 2 DIABETES MELLITUS
     Dosage: 98 U, HS
     Route: 065

REACTIONS (6)
  - Cholelithiasis [Unknown]
  - Chest pain [Unknown]
  - Dyspnoea [Unknown]
  - Cystitis [Unknown]
  - Back pain [Unknown]
  - Product storage error [Unknown]
